FAERS Safety Report 7706500-0 (Version None)
Quarter: 2011Q3

REPORT INFORMATION
  Report Type: 
  Country: None (occurrence: None)
  Receive Date: 20110824
  Receipt Date: 20110822
  Transmission Date: 20111222
  Serious: Yes (Life-Threatening, Hospitalization)
  Sender: FDA-Public Use
  Company Number: JP-PFIZER INC-2011177735

PATIENT
  Age: 6 Year
  Sex: Male
  Weight: 16.5 kg

DRUGS (2)
  1. GENOTROPIN GOQUICK [Suspect]
     Indication: GROWTH HORMONE DEFICIENCY
     Dosage: 0.45 MG, 1X/DAY
     Route: 058
     Dates: start: 20110207
  2. GENOTROPIN [Suspect]
     Indication: GROWTH HORMONE DEFICIENCY
     Dosage: 0.4 MG, 1X/DAY
     Route: 058
     Dates: start: 20080529, end: 20110216

REACTIONS (1)
  - PANCYTOPENIA [None]
